FAERS Safety Report 23518902 (Version 2)
Quarter: 2024Q1

REPORT INFORMATION
  Report Type: Spontaneous
  Country: US (occurrence: US)
  Receive Date: 20240213
  Receipt Date: 20240328
  Transmission Date: 20240409
  Serious: No
  Sender: FDA-Public Use
  Company Number: US-PFIZER INC-PV202400003408

PATIENT
  Age: 79 Year
  Sex: Male
  Weight: 68.027 kg

DRUGS (4)
  1. INLYTA [Suspect]
     Active Substance: AXITINIB
     Indication: Neoplasm
     Dosage: 5 MG, CYCLIC (TWO TIMES A DAY (BID) DAYS 1-21)
     Route: 048
  2. INLYTA [Suspect]
     Active Substance: AXITINIB
     Dosage: 5 MG, (TAKING SAMPLES)
     Route: 048
     Dates: start: 202312
  3. INLYTA [Suspect]
     Active Substance: AXITINIB
     Dosage: 5 MG, AS NEEDED (PRN)
  4. PEMBROLIZUMAB [Concomitant]
     Active Substance: PEMBROLIZUMAB
     Dosage: D1

REACTIONS (2)
  - Neoplasm progression [Unknown]
  - Off label use [Unknown]
